FAERS Safety Report 4874273-5 (Version None)
Quarter: 2006Q1

REPORT INFORMATION
  Report Type: 
  Country: None (occurrence: None)
  Receive Date: 20060104
  Receipt Date: 20060104
  Transmission Date: 20060701
  Serious: Yes (Life-Threatening, Hospitalization)
  Sender: FDA-Public Use
  Company Number: None

PATIENT
  Age: 26 Year
  Sex: Female

DRUGS (1)
  1. TYLENOL (CAPLET) [Suspect]
     Dosage: 60 TABS X 1
     Dates: start: 20050805, end: 20050805

REACTIONS (2)
  - DRUG EXPOSURE DURING PREGNANCY [None]
  - OVERDOSE [None]
